FAERS Safety Report 9079467 (Version 1)
Quarter: 2013Q1

REPORT INFORMATION
  Report Type: Report from Study
  Country: US (occurrence: US)
  Receive Date: 20130130
  Receipt Date: 20130130
  Transmission Date: 20140127
  Serious: No
  Sender: FDA-Public Use
  Company Number: US-ABBOTT-12P-163-0975525-00

PATIENT
  Age: 53 Year
  Sex: Male
  Weight: 138.47 kg

DRUGS (1)
  1. HUMIRA [Suspect]
     Indication: PSORIATIC ARTHROPATHY
     Route: 050
     Dates: start: 20120810

REACTIONS (2)
  - Feeling jittery [Recovered/Resolved]
  - Headache [Recovered/Resolved]
